FAERS Safety Report 24367625 (Version 1)
Quarter: 2024Q3

REPORT INFORMATION
  Report Type: Spontaneous
  Country: US (occurrence: US)
  Receive Date: 20240926
  Receipt Date: 20240926
  Transmission Date: 20241016
  Serious: No
  Sender: PFIZER
  Company Number: US-PFIZER INC-202400209780

PATIENT
  Age: 49 Year
  Sex: Male

DRUGS (4)
  1. VELSIPITY [Suspect]
     Active Substance: ETRASIMOD ARGININE
     Indication: Rectal haemorrhage
     Dosage: 2 MG
  2. VELSIPITY [Suspect]
     Active Substance: ETRASIMOD ARGININE
     Indication: Proctalgia
  3. VELSIPITY [Suspect]
     Active Substance: ETRASIMOD ARGININE
     Indication: Abdominal pain
  4. VELSIPITY [Suspect]
     Active Substance: ETRASIMOD ARGININE
     Indication: Abdominal distension

REACTIONS (1)
  - Skin discomfort [Unknown]
